FAERS Safety Report 5878229-5 (Version None)
Quarter: 2008Q3

REPORT INFORMATION
  Report Type: 
  Country: None (occurrence: None)
  Receive Date: 20080909
  Receipt Date: 20080909
  Transmission Date: 20090109
  Serious: No
  Sender: FDA-Public Use
  Company Number: None

PATIENT

DRUGS (1)
  1. TRILEPTAL [Suspect]
     Dosage: 420/7ML QAM PO    360/6ML QPM PO
     Route: 048

REACTIONS (1)
  - NO ADVERSE EVENT [None]
